FAERS Safety Report 9925532 (Version 1)
Quarter: 2014Q1

REPORT INFORMATION
  Report Type: Spontaneous
  Country: US (occurrence: US)
  Receive Date: 20140226
  Receipt Date: 20140226
  Transmission Date: 20141002
  Serious: Yes (Disabling, Other)
  Sender: FDA-Public Use
  Company Number: US-AMGEN-USASP2014013065

PATIENT
  Age: 51 Year
  Sex: Female
  Weight: 56.68 kg

DRUGS (1)
  1. ENBREL [Suspect]
     Indication: PSORIATIC ARTHROPATHY
     Dosage: 50 MG, QWK
     Route: 058
     Dates: start: 2012

REACTIONS (2)
  - Cough [Recovered/Resolved with Sequelae]
  - Pneumonia [Recovered/Resolved]
